FAERS Safety Report 4902714-3 (Version None)
Quarter: 2006Q1

REPORT INFORMATION
  Report Type: 
  Country: None (occurrence: None)
  Receive Date: 20060207
  Receipt Date: 20051223
  Transmission Date: 20060701
  Serious: Yes (Other)
  Sender: FDA-Public Use
  Company Number: AU-ROCHE-429988

PATIENT
  Age: 42 Year
  Sex: Male
  Weight: 70 kg

DRUGS (5)
  1. FUZEON [Suspect]
     Indication: DRUG USE FOR UNKNOWN INDICATION
     Route: 058
     Dates: start: 20050628
  2. TENOFOVIR [Concomitant]
     Route: 048
     Dates: start: 20000616
  3. KALETRA [Concomitant]
     Route: 048
     Dates: start: 20050620
  4. UNCLASSIFIED DRUG [Concomitant]
     Dosage: DRUG NAME REPORTED AS '32C'
  5. INSULIN [Concomitant]
     Route: 058
     Dates: start: 19940615

REACTIONS (2)
  - ABDOMINAL DISTENSION [None]
  - WEIGHT INCREASED [None]
